FAERS Safety Report 6449111-X (Version None)
Quarter: 2009Q4

REPORT INFORMATION
  Report Type: 
  Country: None (occurrence: None)
  Receive Date: 20091119
  Receipt Date: 20091119
  Transmission Date: 20100525
  Serious: Yes (Other)
  Sender: FDA-Public Use
  Company Number: None

PATIENT
  Age: 28 Year
  Sex: Female
  Weight: 92.5338 kg

DRUGS (4)
  1. CYMBALTA [Suspect]
     Indication: DEPRESSION
     Dosage: 1 CAPSULE PER DAY PO
     Route: 048
     Dates: start: 20090301, end: 20091101
  2. CYMBALTA [Suspect]
     Indication: NEURALGIA
     Dosage: 1 CAPSULE PER DAY PO
     Route: 048
     Dates: start: 20090301, end: 20091101
  3. CYMBALTA [Suspect]
     Indication: PAIN MANAGEMENT
     Dosage: 1 CAPSULE PER DAY PO
     Route: 048
     Dates: start: 20090301, end: 20091101
  4. CYMBALTA [Suspect]
     Indication: REPETITIVE STRAIN INJURY
     Dosage: 1 CAPSULE PER DAY PO
     Route: 048
     Dates: start: 20090301, end: 20091101

REACTIONS (7)
  - ABNORMAL BEHAVIOUR [None]
  - AGGRESSION [None]
  - EMOTIONAL DISORDER [None]
  - EYE MOVEMENT DISORDER [None]
  - MUSCLE SPASMS [None]
  - THINKING ABNORMAL [None]
  - VERTIGO [None]
